FAERS Safety Report 15789787 (Version 2)
Quarter: 2019Q1

REPORT INFORMATION
  Report Type: Report from Study
  Country: CA (occurrence: CA)
  Receive Date: 20190104
  Receipt Date: 20190125
  Transmission Date: 20190417
  Serious: Yes (Other)
  Sender: FDA-Public Use
  Company Number: CA-JNJFOC-20181128240

PATIENT
  Age: 48 Year
  Sex: Male
  Weight: 86 kg

DRUGS (1)
  1. REMICADE [Suspect]
     Active Substance: INFLIXIMAB
     Indication: COLITIS ULCERATIVE
     Route: 042

REACTIONS (10)
  - Abdominal pain [Recovering/Resolving]
  - Constipation [Unknown]
  - Vomiting [Unknown]
  - Weight decreased [Unknown]
  - Diarrhoea [Recovering/Resolving]
  - Hot flush [Unknown]
  - Rectal haemorrhage [Recovered/Resolved]
  - Feeling cold [Unknown]
  - Decreased appetite [Unknown]
  - Flatulence [Not Recovered/Not Resolved]

NARRATIVE: CASE EVENT DATE: 201810
